FAERS Safety Report 7482974-8 (Version None)
Quarter: 2011Q2

REPORT INFORMATION
  Report Type: 
  Country: None (occurrence: None)
  Receive Date: 20110516
  Receipt Date: 20110322
  Transmission Date: 20111010
  Serious: No
  Sender: FDA-Public Use
  Company Number: US-BAYER-2011-027550

PATIENT
  Sex: Female
  Weight: 73 kg

DRUGS (5)
  1. LISINOPRIL [Concomitant]
  2. ASPIRIN [Concomitant]
  3. ALEVE (CAPLET) [Suspect]
     Indication: BACK PAIN
     Dosage: BOTTLE COUNT 40S
     Route: 048
  4. FERROUS SULFATE TAB [Concomitant]
  5. ZOLOFT [Concomitant]

REACTIONS (1)
  - NO ADVERSE EVENT [None]
